FAERS Safety Report 16804519 (Version 1)
Quarter: 2019Q3

REPORT INFORMATION
  Report Type: Spontaneous
  Country: US (occurrence: US)
  Receive Date: 20190723
  Receipt Date: 20190723
  Transmission Date: 20191005
  Serious: Yes (Death, Life-Threatening)
  Sender: FDA-Public Use
  Company Number: None

PATIENT
  Age: 5 Year
  Sex: Female
  Weight: 21.1 kg

DRUGS (2)
  1. LIDOCAINE 1% PF FOR INFILTRATION WOULD LIP [Concomitant]
  2. KETAMINE HYDROCHLORIDE. [Suspect]
     Active Substance: KETAMINE HYDROCHLORIDE
     Route: 030
     Dates: start: 20190723

REACTIONS (1)
  - Bradycardia [None]

NARRATIVE: CASE EVENT DATE: 20190723
